FAERS Safety Report 20768984 (Version 1)
Quarter: 2022Q2

REPORT INFORMATION
  Report Type: Spontaneous
  Country: US (occurrence: US)
  Receive Date: 20220429
  Receipt Date: 20220429
  Transmission Date: 20220721
  Serious: Yes (Other)
  Sender: FDA-Public Use
  Company Number: US-BRISTOL-MYERS SQUIBB COMPANY-BMS-2022-039125

PATIENT
  Age: 79 Year
  Sex: Male
  Weight: 86.182 kg

DRUGS (1)
  1. ELIQUIS [Suspect]
     Active Substance: APIXABAN
     Indication: Atrial fibrillation
     Dosage: UNAVAILABLE
     Route: 048
     Dates: start: 2021

REACTIONS (3)
  - Neoplasm [Unknown]
  - Arthritis [Unknown]
  - Mass [Unknown]
